FAERS Safety Report 25798595 (Version 3)
Quarter: 2025Q3

REPORT INFORMATION
  Report Type: Report from Study
  Country: US (occurrence: US)
  Receive Date: 20250913
  Receipt Date: 20250919
  Transmission Date: 20251021
  Serious: Yes (Other)
  Sender: ABBVIE
  Company Number: US-ABBVIE-6436624

PATIENT
  Age: 63 Year
  Sex: Female
  Weight: 61 kg

DRUGS (4)
  1. VYALEV [Suspect]
     Active Substance: FOSCARBIDOPA\FOSLEVODOPA
     Indication: Parkinson^s disease
     Route: 058
     Dates: start: 20250628
  2. VYALEV [Suspect]
     Active Substance: FOSCARBIDOPA\FOSLEVODOPA
     Route: 058
  3. SINEMET [Concomitant]
     Active Substance: CARBIDOPA\LEVODOPA
     Indication: Parkinson^s disease
  4. LEXAPRO [Concomitant]
     Active Substance: ESCITALOPRAM OXALATE
     Indication: Anxiety

REACTIONS (17)
  - Myalgia [Unknown]
  - Catheter site related reaction [Recovered/Resolved]
  - Infusion site bruising [Not Recovered/Not Resolved]
  - Dystonia [Unknown]
  - Infusion site infection [Recovering/Resolving]
  - Tremor [Unknown]
  - Catheter site injury [Unknown]
  - Tremor [Not Recovered/Not Resolved]
  - Infusion site mass [Not Recovered/Not Resolved]
  - Catheter site discharge [Unknown]
  - Dyspnoea [Not Recovered/Not Resolved]
  - Catheter site related reaction [Unknown]
  - Device breakage [Unknown]
  - Catheter site swelling [Unknown]
  - Infusion site cellulitis [Not Recovered/Not Resolved]
  - Infusion site infection [Unknown]
  - On and off phenomenon [Unknown]

NARRATIVE: CASE EVENT DATE: 20250101
